FAERS Safety Report 16773719 (Version 10)
Quarter: 2023Q1

REPORT INFORMATION
  Report Type: Report from Study
  Country: CO (occurrence: CO)
  Receive Date: 20190904
  Receipt Date: 20230329
  Transmission Date: 20230418
  Serious: Yes (Hospitalization, Other)
  Sender: FDA-Public Use
  Company Number: PHHY2019CO088811

PATIENT
  Sex: Female
  Weight: 71 kg

DRUGS (11)
  1. XOLAIR [Suspect]
     Active Substance: OMALIZUMAB
     Indication: Asthma
     Dosage: UNK UNK, QMO
     Route: 058
     Dates: start: 2013
  2. XOLAIR [Suspect]
     Active Substance: OMALIZUMAB
     Dosage: 300 MG, QMO
     Route: 058
     Dates: start: 2016
  3. XOLAIR [Suspect]
     Active Substance: OMALIZUMAB
     Dosage: 300 MG, QMO
     Route: 058
     Dates: start: 20180227
  4. XOLAIR [Suspect]
     Active Substance: OMALIZUMAB
     Dosage: UNK MG
     Route: 058
     Dates: start: 20190817
  5. XOLAIR [Suspect]
     Active Substance: OMALIZUMAB
     Dosage: 300 MG, QMO
     Route: 058
  6. XOLAIR [Suspect]
     Active Substance: OMALIZUMAB
     Dosage: 600 MG, QMO
     Route: 058
  7. LOSARTAN [Suspect]
     Active Substance: LOSARTAN
     Indication: Hypertension
     Dosage: 1 DOSAGE FORM
     Route: 065
  8. ALBUTEROL [Suspect]
     Active Substance: ALBUTEROL
     Indication: Asthmatic crisis
     Dosage: 4 DOSAGE FORM
  9. BUDEMAR [Concomitant]
     Indication: Product used for unknown indication
     Dosage: 1 DOSAGE FORM (PUFF), Q12H
  10. SPIRIVA [Concomitant]
     Active Substance: TIOTROPIUM BROMIDE MONOHYDRATE
     Indication: Product used for unknown indication
     Dosage: 2 DOSAGE FORM (PUFFS), QD
     Route: 065
  11. HYDROCORTISONE [Concomitant]
     Active Substance: HYDROCORTISONE
     Indication: Product used for unknown indication
     Dosage: 2 DOSAGE FORM, QD
     Route: 065

REACTIONS (22)
  - Cholelithiasis [Recovering/Resolving]
  - Asthmatic crisis [Unknown]
  - Eye allergy [Recovered/Resolved]
  - Spinal pain [Not Recovered/Not Resolved]
  - Wheezing [Recovered/Resolved]
  - Rhinitis allergic [Unknown]
  - Eye inflammation [Unknown]
  - Wheezing [Unknown]
  - Cough [Recovered/Resolved]
  - Dyspnoea [Recovered/Resolved]
  - Vertigo [Recovered/Resolved]
  - Abdominal pain [Unknown]
  - Rhinorrhoea [Unknown]
  - Malaise [Unknown]
  - Urinary tract infection [Unknown]
  - Renal disorder [Unknown]
  - Pyrexia [Unknown]
  - Injection site erythema [Unknown]
  - Injection site swelling [Unknown]
  - Headache [Recovered/Resolved]
  - Headache [Recovered/Resolved]
  - Diarrhoea [Unknown]

NARRATIVE: CASE EVENT DATE: 20160101
